FAERS Safety Report 21100723 (Version 1)
Quarter: 2022Q3

REPORT INFORMATION
  Report Type: Spontaneous
  Country: US (occurrence: US)
  Receive Date: 20220719
  Receipt Date: 20220719
  Transmission Date: 20221027
  Serious: Yes (Other)
  Sender: FDA-Public Use
  Company Number: US-TEVA-2022-US-2055248

PATIENT
  Sex: Female

DRUGS (1)
  1. PROAIR HFA [Suspect]
     Active Substance: ALBUTEROL SULFATE
     Indication: Asthma
     Dosage: FREQUENCY TIME: AS NEEDED
     Route: 065

REACTIONS (2)
  - Pneumonia [Unknown]
  - SARS-CoV-2 test positive [Unknown]
